FAERS Safety Report 5683837-0 (Version None)
Quarter: 2008Q1

REPORT INFORMATION
  Report Type: 
  Country: None (occurrence: None)
  Receive Date: 20080326
  Receipt Date: 20070719
  Transmission Date: 20080703
  Serious: Yes (Death)
  Sender: FDA-Public Use
  Company Number: 6035932

PATIENT
  Sex: Male

DRUGS (1)
  1. METFORMIN/ GLYBURIDE  (METFORMIN HYDROCHLORIDE, GLIBENCLAMIDE) [Suspect]
     Indication: DRUG USE FOR UNKNOWN INDICATION
     Dosage: ORAL
     Route: 048

REACTIONS (1)
  - METABOLIC ACIDOSIS [None]
